FAERS Safety Report 9085320 (Version 1)
Quarter: 2013Q1

REPORT INFORMATION
  Report Type: Spontaneous
  Country: US (occurrence: US)
  Receive Date: 20130218
  Receipt Date: 20130218
  Transmission Date: 20140127
  Serious: Yes (Other)
  Sender: FDA-Public Use
  Company Number: PHEH2013US003724

PATIENT
  Sex: Female

DRUGS (8)
  1. DIOVAN [Suspect]
     Indication: HYPERTENSION
     Dosage: 160 MG, QD
     Route: 048
  2. DUEXIS [Concomitant]
  3. FLUOXETINE [Concomitant]
  4. LEVOTHYROXINE [Concomitant]
  5. LIPITOR [Concomitant]
  6. TOPOMAX [Concomitant]
  7. VITAMIN D [Concomitant]
     Dosage: 2000 MG, UNK
  8. ASPIRIN [Concomitant]
     Dosage: 80 MG, QD

REACTIONS (2)
  - Arthritis [Unknown]
  - Tendon rupture [Unknown]
